FAERS Safety Report 7265468-4 (Version None)
Quarter: 2011Q1

REPORT INFORMATION
  Report Type: 
  Country: None (occurrence: None)
  Receive Date: 20110131
  Receipt Date: 20110119
  Transmission Date: 20110831
  Serious: Yes (Other)
  Sender: FDA-Public Use
  Company Number: PHHY2011US04821

PATIENT
  Sex: Female

DRUGS (1)
  1. RECLAST [Suspect]
     Dosage: 5 MG, UNK
     Route: 042

REACTIONS (8)
  - AMNESIA [None]
  - URINARY TRACT DISORDER [None]
  - COGNITIVE DISORDER [None]
  - MALAISE [None]
  - MOVEMENT DISORDER [None]
  - CONFUSIONAL STATE [None]
  - PAIN [None]
  - ABASIA [None]
